FAERS Safety Report 8885369 (Version 1)
Quarter: 2012Q4

REPORT INFORMATION
  Report Type: 
  Country: US (occurrence: US)
  Receive Date: 20121102
  Receipt Date: 20121102
  Transmission Date: 20130627
  Serious: No
  Sender: FDA-Public Use
  Company Number: US-BIOGENIDEC-2012BI047225

PATIENT
  Sex: Female

DRUGS (3)
  1. TYSABRI [Suspect]
     Indication: MULTIPLE SCLEROSIS
     Route: 042
  2. TYSABRI [Suspect]
     Indication: MULTIPLE SCLEROSIS
     Route: 042
     Dates: start: 20100727
  3. AVONEX [Concomitant]
     Indication: MULTIPLE SCLEROSIS
     Route: 030
     Dates: start: 20011101

REACTIONS (6)
  - Back disorder [Not Recovered/Not Resolved]
  - Nerve root compression [Not Recovered/Not Resolved]
  - Pain in extremity [Unknown]
  - Central venous catheterisation [Recovered/Resolved]
  - Fear [Not Recovered/Not Resolved]
  - Poor venous access [Recovered/Resolved]
